FAERS Safety Report 17680350 (Version 6)
Quarter: 2020Q3

REPORT INFORMATION
  Report Type: Report from Study
  Country: None (occurrence: KR)
  Receive Date: 20200417
  Receipt Date: 20200723
  Transmission Date: 20201102
  Serious: Yes (Death, Other)
  Sender: FDA-Public Use
  Company Number: KR-ABBVIE-20K-090-3368918-00

PATIENT
  Age: 60 Year
  Sex: Female
  Weight: 51 kg

DRUGS (19)
  1. LYRICA [Concomitant]
     Active Substance: PREGABALIN
     Indication: NEUROPATHY PERIPHERAL
  2. VESICARE [Concomitant]
     Active Substance: SOLIFENACIN SUCCINATE
     Indication: URETEROLITHIASIS
  3. VENCLEXTA [Suspect]
     Active Substance: VENETOCLAX
     Route: 048
     Dates: start: 20200409, end: 20200414
  4. PENIRAMIN [Concomitant]
     Indication: NEUROPATHY PERIPHERAL
  5. SALAGEN [Concomitant]
     Active Substance: PILOCARPINE HYDROCHLORIDE
     Indication: PROPHYLAXIS
  6. IRCODON [Concomitant]
     Active Substance: OXYCODONE HYDROCHLORIDE
     Indication: ARTERITIS
  7. ZYLORIC [Concomitant]
     Active Substance: ALLOPURINOL
     Indication: PROPHYLAXIS
  8. CONBLOC [Concomitant]
     Indication: ATRIAL FIBRILLATION
  9. VENCLEXTA [Suspect]
     Active Substance: VENETOCLAX
     Indication: CHRONIC LYMPHOCYTIC LEUKAEMIA
     Route: 048
     Dates: start: 20200402, end: 20200408
  10. NEURONTIN [Concomitant]
     Active Substance: GABAPENTIN
     Indication: NEUROPATHY PERIPHERAL
  11. AMPHOJEL [Concomitant]
     Active Substance: ALUMINUM HYDROXIDE
     Indication: ULCER
  12. BARACLUDE [Concomitant]
     Active Substance: ENTECAVIR
     Indication: HEPATITIS B
  13. DIGOSIN [Concomitant]
     Active Substance: DIGOXIN
     Indication: ATRIAL FIBRILLATION
  14. SOLONDO [Concomitant]
     Active Substance: PREDNISOLONE
     Indication: ARTERITIS
  15. URO VAXOM [Concomitant]
     Active Substance: ESCHERICHIA COLI
     Indication: URETEROLITHIASIS
  16. DURICEF [Concomitant]
     Active Substance: CEFADROXIL
     Indication: URETEROLITHIASIS
  17. ASPIRIN. [Concomitant]
     Active Substance: ASPIRIN
     Indication: ATRIAL FIBRILLATION
  18. TARGIN [Concomitant]
     Active Substance: NALOXONE HYDROCHLORIDE\OXYCODONE HYDROCHLORIDE
     Indication: ARTERITIS
  19. BETMIGA [Concomitant]
     Active Substance: MIRABEGRON
     Indication: URETEROLITHIASIS

REACTIONS (2)
  - Chronic lymphocytic leukaemia [Fatal]
  - Septic shock [Fatal]

NARRATIVE: CASE EVENT DATE: 2020
